FAERS Safety Report 7788069-8 (Version None)
Quarter: 2011Q3

REPORT INFORMATION
  Report Type: 
  Country: None (occurrence: None)
  Receive Date: 20110927
  Receipt Date: 20110919
  Transmission Date: 20111222
  Serious: Yes (Other)
  Sender: FDA-Public Use
  Company Number: 2011SP038941

PATIENT
  Age: 21 Year
  Sex: Female

DRUGS (3)
  1. MERCILON (DESOGESTREL/ETHINYLESTRADIOL /00570801/) [Suspect]
     Indication: CONTRACEPTION
     Dates: start: 20080101, end: 20110918
  2. HYDROCORTISONE [Concomitant]
  3. LIOTHYRONINE SODIUM [Concomitant]

REACTIONS (4)
  - STRESS [None]
  - MOOD SWINGS [None]
  - REVERSE TRI-IODOTHYRONINE INCREASED [None]
  - NAUSEA [None]
